FAERS Safety Report 9561837 (Version 1)
Quarter: 2013Q3

REPORT INFORMATION
  Report Type: Spontaneous
  Country: GB (occurrence: None)
  Receive Date: 20130830
  Receipt Date: 20130830
  Transmission Date: 20140515
  Serious: Yes (Hospitalization)
  Sender: FDA-Public Use
  Company Number: AMAG201300072

PATIENT
  Age: 66 Year
  Sex: Male

DRUGS (18)
  1. RIENSO [Suspect]
     Indication: IRON DEFICIENCY
     Dosage: 510 MG , SINGLE, INTRAVENOUS
     Route: 042
     Dates: start: 20130304, end: 20130304
  2. WARFARIN SODIUM (WARFARIN SODIUM) [Concomitant]
  3. SOMAC (PANTOPRAZOLE SODIUM SESQUIHYDRATE) [Concomitant]
  4. INSULIN DETEMIR (INSULIN DETERMIR) [Concomitant]
  5. INSULIN ASPART (INSULIN ASPART) [Concomitant]
  6. KALCIPOS-D (CALCIUM CARBONATE, COLECALCIFEROL) [Concomitant]
  7. KALEORID (POTASSIUM CHLORIDE) [Concomitant]
  8. DIGOXIN (DIGOXIN) [Concomitant]
  9. FURESIS (FUROSEMIDE) [Concomitant]
  10. BISOPROLOL (BISOPROLOL FUMARATE, HYDROCHLOROTHIAZIDE) [Concomitant]
  11. AMLODIPINE (AMLODIPINE) [Concomitant]
  12. ATORVASTATIN (ATORVASTATINE) [Concomitant]
  13. OMNIC (TAMSULOSIN HYDROCHLORIDE) [Concomitant]
  14. PREDNISOLONE (PREDNISOLONE) [Concomitant]
  15. CELLCEPT (MYCOPHENOLATE MOFETIL) TABLET [Concomitant]
  16. ALLONOL (ALLOPURINOL) [Concomitant]
  17. IMOVANE (ZOPICLONE) [Concomitant]
  18. PARA-TABS (PARACETAMOL) [Concomitant]

REACTIONS (1)
  - Hypersensitivity [None]
